FAERS Safety Report 8180699-7 (Version None)
Quarter: 2012Q1

REPORT INFORMATION
  Report Type: 
  Country: None (occurrence: None)
  Receive Date: 20120301
  Receipt Date: 20120301
  Transmission Date: 20120608
  Serious: Yes (Hospitalization)
  Sender: FDA-Public Use
  Company Number: None

PATIENT
  Sex: Female
  Weight: 58.9676 kg

DRUGS (1)
  1. CIPROFLOXACIN HCL [Suspect]
     Indication: RESPIRATORY TRACT CONGESTION
     Dosage: 1 TABLET 2 X A DAY
     Dates: start: 20120215

REACTIONS (2)
  - LOSS OF CONSCIOUSNESS [None]
  - PRURITUS GENERALISED [None]
